FAERS Safety Report 13612869 (Version 4)
Quarter: 2017Q3

REPORT INFORMATION
  Report Type: Spontaneous
  Country: US (occurrence: US)
  Receive Date: 20170605
  Receipt Date: 20170804
  Transmission Date: 20171127
  Serious: Yes (Death, Life-Threatening, Hospitalization, Other)
  Sender: FDA-Public Use
  Company Number: US-ELI_LILLY_AND_COMPANY-US201705009820

PATIENT
  Age: 34 Year
  Sex: Female
  Weight: 60 kg

DRUGS (1)
  1. ADCIRCA [Suspect]
     Active Substance: TADALAFIL
     Indication: PULMONARY ARTERIAL HYPERTENSION
     Dosage: 40 MG, DAILY
     Route: 048
     Dates: start: 201104, end: 20170522

REACTIONS (8)
  - Splenic artery aneurysm [Fatal]
  - Abdominal abscess [Unknown]
  - Peripheral arterial occlusive disease [Unknown]
  - Cardiogenic shock [Fatal]
  - Portal hypertension [Fatal]
  - Right ventricular failure [Fatal]
  - Portal vein thrombosis [Unknown]
  - Hypersplenism [Unknown]

NARRATIVE: CASE EVENT DATE: 20170524
